FAERS Safety Report 6736000-6 (Version None)
Quarter: 2010Q2

REPORT INFORMATION
  Report Type: 
  Country: None (occurrence: None)
  Receive Date: 20100521
  Receipt Date: 20100510
  Transmission Date: 20101027
  Serious: No
  Sender: FDA-Public Use
  Company Number: DE-ELI_LILLY_AND_COMPANY-DE201005003892

PATIENT
  Sex: Male

DRUGS (5)
  1. CIALIS [Suspect]
     Dosage: 20 MG, UNKNOWN
     Route: 048
     Dates: start: 20100509
  2. ACYCLOVIR SODIUM [Concomitant]
     Dosage: 400 MG, UNK
     Dates: start: 20091101
  3. BRIMONIDINE [Concomitant]
  4. COSOPT [Concomitant]
  5. GLAUPAX [Concomitant]

REACTIONS (5)
  - FOREIGN BODY SENSATION IN EYES [None]
  - HERPES OPHTHALMIC [None]
  - HERPES VIRUS INFECTION [None]
  - INTRAOCULAR PRESSURE INCREASED [None]
  - VISION BLURRED [None]
